FAERS Safety Report 21122929 (Version 4)
Quarter: 2023Q1

REPORT INFORMATION
  Report Type: Report from Study
  Country: DE (occurrence: DE)
  Receive Date: 20220724
  Receipt Date: 20230119
  Transmission Date: 20230417
  Serious: Yes (Hospitalization)
  Sender: FDA-Public Use
  Company Number: DE-AMGEN-DEUSL2022121974

PATIENT
  Age: 24 Year
  Sex: Male
  Weight: 113 kg

DRUGS (7)
  1. ADALIMUMAB [Suspect]
     Active Substance: ADALIMUMAB
     Indication: Juvenile idiopathic arthritis
     Dosage: 40 MILLIGRAM, Q2WK
     Route: 058
     Dates: start: 2020, end: 20220531
  2. METHOTREXATE [Concomitant]
     Active Substance: METHOTREXATE
     Dosage: 10 MILLIGRAM, QWK
  3. ACEMETACIN [Concomitant]
     Active Substance: ACEMETACIN
     Dosage: 90 MILLIGRAM, AS NECESSARY
  4. IBUPROFEN [Concomitant]
     Active Substance: IBUPROFEN
     Dosage: 600 MILLIGRAM, AS NECESSARY
  5. NEXIUM [Concomitant]
     Active Substance: ESOMEPRAZOLE MAGNESIUM
     Dosage: 40 MILLIGRAM, BID
  6. CALCIUM [Concomitant]
     Active Substance: CALCIUM
     Dosage: UNK UNK, QD,  500/1000
  7. FOLIC ACID [Concomitant]
     Active Substance: FOLIC ACID
     Dosage: 5 MILLIGRAM, QWK

REACTIONS (7)
  - Sarcoid-like reaction [Not Recovered/Not Resolved]
  - Disturbance in attention [Unknown]
  - Sleep disorder [Unknown]
  - Dysuria [Unknown]
  - Inflammatory pain [Unknown]
  - Weight decreased [Unknown]
  - Arthralgia [Unknown]
